FAERS Safety Report 7797516-7 (Version None)
Quarter: 2011Q4

REPORT INFORMATION
  Report Type: 
  Country: None (occurrence: None)
  Receive Date: 20111003
  Receipt Date: 20110920
  Transmission Date: 20120403
  Serious: Yes (Other)
  Sender: FDA-Public Use
  Company Number: 2011AP002123

PATIENT
  Age: 38 Year
  Sex: Male

DRUGS (1)
  1. FLUCONAZOLE [Suspect]
     Indication: ONYCHOMYCOSIS
     Dosage: 5 DFL CAP; PO; QD
     Route: 048
     Dates: start: 20110530, end: 20110630

REACTIONS (3)
  - VISUAL IMPAIRMENT [None]
  - DIZZINESS [None]
  - DIARRHOEA [None]
